FAERS Safety Report 16938406 (Version 2)
Quarter: 2019Q4

REPORT INFORMATION
  Report Type: Spontaneous
  Country: NL (occurrence: NL)
  Receive Date: 20191019
  Receipt Date: 20191023
  Transmission Date: 20200122
  Serious: Yes (Hospitalization, Other)
  Sender: FDA-Public Use
  Company Number: NL-AUROBINDO-AUR-APL-2019-066786

PATIENT
  Sex: Female

DRUGS (2)
  1. OXYCODONE [Suspect]
     Active Substance: OXYCODONE
     Indication: ANALGESIC THERAPY
  2. OXYCODONE [Suspect]
     Active Substance: OXYCODONE
     Indication: PAIN
     Dosage: UNK, FOR TWO WEEKS
     Route: 065

REACTIONS (7)
  - Confusional state [Recovered/Resolved]
  - Dementia [Recovered/Resolved]
  - Fatigue [Recovered/Resolved]
  - Feeding disorder [Recovered/Resolved]
  - Soliloquy [Recovered/Resolved]
  - Fear [Recovered/Resolved]
  - Depression [Recovered/Resolved]
